FAERS Safety Report 13246953 (Version 1)
Quarter: 2017Q1

REPORT INFORMATION
  Report Type: Spontaneous
  Country: US (occurrence: US)
  Receive Date: 20170217
  Receipt Date: 20170217
  Transmission Date: 20170428
  Serious: Yes (Other)
  Sender: FDA-Public Use
  Company Number: US-ASTRAZENECA-2017SE15735

PATIENT
  Age: 67 Year
  Sex: Female

DRUGS (17)
  1. ANASTROZOLE. [Suspect]
     Active Substance: ANASTROZOLE
     Route: 048
     Dates: start: 20150511
  2. PNEUMOVAX 23 [Concomitant]
     Active Substance: PNEUMOCOCCAL VACCINE, POLYVALENT 23
     Dosage: 23 25 MCG/0.5 ML, 12 WEEKS AFTER PATUIENT RECEIVED PREVNAR VACCINE
     Route: 048
     Dates: start: 20151203
  3. ADACEL TDAP [Concomitant]
     Active Substance: TETANUS TOXOID, REDUCED DIPHTHERIA TOXOID AND ACELLULAR PERTUSSIS VACCINE ADSORBED, TDAP
     Dosage: 5-2-15.5  LF-MCG/0.5
     Route: 030
     Dates: start: 20151203
  4. NAPROXEN SODIUM. [Suspect]
     Active Substance: NAPROXEN SODIUM
     Route: 048
     Dates: start: 20150518
  5. ONDANSETRON HCL [Concomitant]
     Active Substance: ONDANSETRON HYDROCHLORIDE
     Dosage: 8 MG, 1 TABLET BY MOUTH THREE TIMES A DAY AS NEEDED.
     Route: 048
     Dates: start: 20150518
  6. AMITRIPTYLINE HCL [Concomitant]
     Active Substance: AMITRIPTYLINE
     Dosage: 25 MG, 1 TABLET AT BEDTIME
     Route: 048
     Dates: start: 20150511
  7. VITAMIN B12 [Concomitant]
     Active Substance: CYANOCOBALAMIN
     Dosage: 1000 MCG, CAPSULE FREQUENCY UNKNOWN
     Route: 048
     Dates: start: 20150511
  8. IBRANCE [Suspect]
     Active Substance: PALBOCICLIB
     Dosage: 125 MG X THREE WEEKS EVERY 28 DAYS
     Route: 048
     Dates: start: 20161018
  9. FASLODEX [Suspect]
     Active Substance: FULVESTRANT
     Dosage: 250 MG/5 ML, 500 MG,3 DF, EVERY TWO WEEKS AND THEN MONTHLY
     Route: 030
     Dates: start: 20161018
  10. TRAMADOL HCL [Concomitant]
     Active Substance: TRAMADOL HYDROCHLORIDE
     Dosage: 50 MG, 1 TABLET DAILY AS NEEDED
     Route: 048
     Dates: start: 20160719
  11. ASPIRIN. [Concomitant]
     Active Substance: ASPIRIN
     Dosage: 81 MG, 1 TABLET DAILY AS DIRECTED
     Route: 048
     Dates: start: 20151203
  12. METFORMIN HCL [Concomitant]
     Active Substance: METFORMIN HYDROCHLORIDE
     Dosage: 1000 MG, 1 TABLET, EVERY 12 HOURS
     Route: 048
     Dates: start: 20150511
  13. PREVNAR [Concomitant]
     Active Substance: PNEUMOCOCCAL 7-VALENT CONJUGATE VACCINE (DIPHTHERIA CRM197 PROTEIN)
     Route: 030
     Dates: start: 20151203
  14. CRESTOR [Suspect]
     Active Substance: ROSUVASTATIN CALCIUM
     Route: 048
     Dates: start: 20160511
  15. OFLOXACIN. [Concomitant]
     Active Substance: OFLOXACIN
     Dosage: 0.3% OTIC SOLUTION; INSTIL;L 3 DROPS INTO AFFECTED EAR 2 TIMES DAILY
     Route: 048
     Dates: start: 20160128
  16. LOSARTAN POTASSIUM AND HYDROCHLOROTHIAZIDE [Concomitant]
     Active Substance: HYDROCHLOROTHIAZIDE\LOSARTAN POTASSIUM
     Dosage: 100-25 MG, 1 TABLET DAILY
     Route: 048
     Dates: start: 20160407
  17. OXYCODONE HYDROCHLORIDE. [Concomitant]
     Active Substance: OXYCODONE HYDROCHLORIDE
     Dosage: 5 MG CAPSULE, 1/2
     Route: 048
     Dates: start: 20150511

REACTIONS (15)
  - Bacterial disease carrier [Unknown]
  - Malignant neoplasm progression [Unknown]
  - Anaemia [Recovering/Resolving]
  - Diarrhoea [Unknown]
  - Nausea [Unknown]
  - Arthralgia [Unknown]
  - Metastases to bone [Unknown]
  - Vomiting [Unknown]
  - Anxiety [Unknown]
  - Otitis media chronic [Recovered/Resolved]
  - Cytopenia [Recovered/Resolved]
  - Upper respiratory tract infection [Unknown]
  - Metastases to liver [Unknown]
  - Mastoiditis [Unknown]
  - Fatigue [Recovered/Resolved]
